FAERS Safety Report 4927132-3 (Version None)
Quarter: 2006Q1

REPORT INFORMATION
  Report Type: 
  Country: None (occurrence: None)
  Receive Date: 20060228
  Receipt Date: 20060217
  Transmission Date: 20060701
  Serious: Yes (Death)
  Sender: FDA-Public Use
  Company Number: JP-JNJFOC-20060204090

PATIENT
  Age: 65 Year
  Sex: Female

DRUGS (14)
  1. OFLOCET [Suspect]
     Indication: DIARRHOEA
     Route: 048
     Dates: start: 20060105, end: 20060112
  2. OFLOCET [Suspect]
     Indication: LEGIONELLA INFECTION
     Route: 048
     Dates: start: 20060105, end: 20060112
  3. FLAGYL [Suspect]
     Route: 048
     Dates: start: 20060106, end: 20060110
  4. SOLUPRED [Suspect]
     Route: 048
     Dates: start: 20051228, end: 20060102
  5. KETEK [Suspect]
     Route: 048
     Dates: start: 20051228, end: 20060104
  6. MOTILIUM [Suspect]
     Indication: VOMITING
     Route: 048
  7. MOTILIUM [Suspect]
     Indication: NAUSEA
     Route: 048
  8. TRIFLUCAN [Suspect]
     Route: 048
     Dates: start: 20060110, end: 20060113
  9. AMLOR [Concomitant]
  10. SINEMAT [Concomitant]
  11. SINEMAT [Concomitant]
  12. NEXIUM [Concomitant]
     Route: 048
  13. IMOVANE [Concomitant]
  14. FORLAX [Concomitant]

REACTIONS (4)
  - GRAND MAL CONVULSION [None]
  - MONOPARESIS [None]
  - MYDRIASIS [None]
  - STAPHYLOCOCCAL SEPSIS [None]
